FAERS Safety Report 4609386-6 (Version None)
Quarter: 2005Q2

REPORT INFORMATION
  Report Type: 
  Country: None (occurrence: None)
  Receive Date: 20050301
  Receipt Date: 20041116
  Transmission Date: 20051028
  Serious: Yes (Hospitalization, Other)
  Sender: FDA-Public Use
  Company Number: WAES 0411USA02852

PATIENT
  Age: 33 Year
  Sex: Male

DRUGS (10)
  1. ZETIA [Suspect]
     Indication: HYPERCHOLESTEROLAEMIA
     Dosage: 10 MG DAILY PO
     Route: 048
  2. AMITRIPTYLIN [Concomitant]
  3. AVAPRO [Concomitant]
  4. LASIX [Concomitant]
  5. PRECOSE [Concomitant]
  6. PREVACID [Concomitant]
  7. VERELAN [Concomitant]
  8. ERYTHROMYCIN [Concomitant]
  9. GEMFIBROZIL [Concomitant]
  10. VITAMINS [Concomitant]

REACTIONS (1)
  - PANCREATITIS [None]
